FAERS Safety Report 4716310-4 (Version None)
Quarter: 2005Q3

REPORT INFORMATION
  Report Type: 
  Country: None (occurrence: None)
  Receive Date: 20050711
  Receipt Date: 20041122
  Transmission Date: 20060218
  Serious: Yes (Death)
  Sender: FDA-Public Use
  Company Number: 387113

PATIENT
  Age: 79 Year
  Sex: Male
  Weight: 145 kg

DRUGS (3)
  1. CELLCEPT [Suspect]
     Indication: MYASTHENIA GRAVIS
     Dosage: 500 UNIT 2 PER DAY ORAL
     Route: 048
     Dates: start: 20030415
  2. CELLCEPT [Suspect]
     Indication: MYASTHENIC SYNDROME
     Dosage: 500 UNIT 2 PER DAY ORAL
     Route: 048
     Dates: start: 20030415
  3. PREDNISONE [Concomitant]

REACTIONS (1)
  - RESPIRATORY FAILURE [None]
